FAERS Safety Report 5673040-2 (Version None)
Quarter: 2008Q1

REPORT INFORMATION
  Report Type: 
  Country: None (occurrence: None)
  Receive Date: 20080319
  Receipt Date: 20080116
  Transmission Date: 20080703
  Serious: No
  Sender: FDA-Public Use
  Company Number: US-ASTRAZENECA-2008UW01280

PATIENT
  Age: 71 Year
  Sex: Male
  Weight: 80.7 kg

DRUGS (2)
  1. SYMBICORT [Suspect]
     Dosage: 1 PUFF DAILY
     Route: 055
  2. SPIRIVA [Concomitant]

REACTIONS (1)
  - CONSTIPATION [None]
